FAERS Safety Report 24174732 (Version 1)
Quarter: 2024Q3

REPORT INFORMATION
  Report Type: Spontaneous
  Country: CA (occurrence: CA)
  Receive Date: 20240805
  Receipt Date: 20240805
  Transmission Date: 20241017
  Serious: Yes (Other)
  Sender: COVIS PHARMA
  Company Number: CA-AstraZeneca-2020SE00455

PATIENT
  Age: 56 Year
  Sex: Male
  Weight: 91 kg

DRUGS (8)
  1. ALVESCO [Suspect]
     Active Substance: CICLESONIDE
     Dosage: 2 PUFFS, BID
     Route: 055
  2. OLODATEROL HYDROCHLORIDE\TIOTROPIUM BROMIDE MONOHYDRATE [Suspect]
     Active Substance: OLODATEROL HYDROCHLORIDE\TIOTROPIUM BROMIDE MONOHYDRATE
     Dosage: 2 PUFFS, QD
     Route: 055
  3. OMALIZUMAB [Suspect]
     Active Substance: OMALIZUMAB
     Dosage: 300 MG Z300.0MG UNKNOWN
     Dates: start: 2012
  4. ALBUTEROL SULFATE [Suspect]
     Active Substance: ALBUTEROL SULFATE
     Dosage: 1 PUFF, 1 OR 2 PUFFS EVERY 6 HOURS1.0DF UNKNOWN
     Dates: start: 20181106
  5. SINGULAIR [Suspect]
     Active Substance: MONTELUKAST SODIUM
     Dosage: 10 MG,QD
  6. AZITHROMYCIN [Concomitant]
     Active Substance: AZITHROMYCIN
     Dosage: 250 MG, UNK, 2 TIMES A WEEK250.0MG UNKNOWN
  7. PREDNISONE [Concomitant]
     Active Substance: PREDNISONE
     Dosage: 20 MG, QD
     Route: 048
     Dates: start: 201809
  8. PREDNISONE [Concomitant]
     Active Substance: PREDNISONE
     Route: 048

REACTIONS (7)
  - Asthma-chronic obstructive pulmonary disease overlap syndrome [Unknown]
  - Full blood count abnormal [Unknown]
  - Hypogammaglobulinaemia [Recovered/Resolved]
  - Obstructive airways disorder [Unknown]
  - Rhinitis allergic [Recovered/Resolved]
  - Asthma [Unknown]
  - Therapeutic product effect incomplete [Unknown]
